FAERS Safety Report 20063733 (Version 1)
Quarter: 2021Q4

REPORT INFORMATION
  Report Type: Spontaneous
  Country: US (occurrence: US)
  Receive Date: 20211112
  Receipt Date: 20211112
  Transmission Date: 20220303
  Serious: No
  Sender: FDA-Public Use
  Company Number: US-KYOWAKIRIN-2021BKK018806

PATIENT

DRUGS (1)
  1. SANCUSO [Suspect]
     Active Substance: GRANISETRON
     Indication: Prophylaxis of nausea and vomiting
     Dosage: 1 PATCH TOPICALLY 24-48 HOURS BEFORE CHEMO (LEAVE PATCH ON FOR 7 DAYS)
     Route: 061
     Dates: start: 20211023

REACTIONS (3)
  - Therapy partial responder [Unknown]
  - Device physical property issue [Unknown]
  - Product adhesion issue [Unknown]

NARRATIVE: CASE EVENT DATE: 20211001
